FAERS Safety Report 9982016 (Version 1)
Quarter: 2014Q1

REPORT INFORMATION
  Report Type: Report from Study
  Country: US (occurrence: US)
  Receive Date: 20140307
  Receipt Date: 20140307
  Transmission Date: 20141002
  Serious: No
  Sender: FDA-Public Use
  Company Number: US-ABBVIE-13P-163-1181954-00

PATIENT
  Age: 65 Year
  Sex: Male

DRUGS (15)
  1. HUMIRA [Suspect]
     Indication: PSORIATIC ARTHROPATHY
     Dates: start: 20131009
  2. ACIPHEX [Concomitant]
     Indication: PRODUCT USED FOR UNKNOWN INDICATION
  3. ALFUZOSIN HCL [Concomitant]
     Indication: URINE FLOW DECREASED
     Dosage: EXTENDED RELEASE
  4. CYMBALTA [Concomitant]
     Indication: ANXIETY
  5. CYMBALTA [Concomitant]
     Indication: DEPRESSION
  6. CYMBALTA [Concomitant]
     Indication: ARTHRITIS
  7. ENABLEX [Concomitant]
     Indication: PRODUCT USED FOR UNKNOWN INDICATION
  8. LAMOTRIGINE [Concomitant]
     Indication: PRODUCT USED FOR UNKNOWN INDICATION
  9. LIPITOR [Concomitant]
     Indication: BLOOD CHOLESTEROL INCREASED
  10. METHYLPREDNISOLONE [Concomitant]
     Indication: PRODUCT USED FOR UNKNOWN INDICATION
  11. METHYLPREDNISOLONE [Concomitant]
     Dosage: ALTERNATE BETWEEN 4 MG AND 3.5 MG
  12. VYVANSE [Concomitant]
     Indication: ATTENTION DEFICIT/HYPERACTIVITY DISORDER
  13. VYVANSE [Concomitant]
     Indication: DISTURBANCE IN ATTENTION
  14. ADVIL [Concomitant]
     Indication: NERVE COMPRESSION
  15. ADVIL [Concomitant]
     Indication: SPONDYLITIS

REACTIONS (1)
  - Inappropriate schedule of drug administration [Unknown]
